FAERS Safety Report 9680338 (Version 2)
Quarter: 2014Q4

REPORT INFORMATION
  Report Type: Report from Study
  Country: AU (occurrence: AU)
  Receive Date: 20131111
  Receipt Date: 20141007
  Transmission Date: 20150529
  Serious: Yes (Life-Threatening, Hospitalization)
  Sender: FDA-Public Use
  Company Number: AU-JNJFOC-20131102855

PATIENT
  Age: 81 Year
  Sex: Male

DRUGS (2)
  1. EVICEL [Suspect]
     Active Substance: FIBRINOGEN HUMAN\THROMBIN HUMAN
     Indication: INTESTINAL ANASTOMOSIS
     Route: 061
     Dates: start: 20130730
  2. ALL OTHER THERAPEUTIC PRODUCT [Concomitant]
     Active Substance: UNSPECIFIED INGREDIENT
     Indication: INTESTINAL ANASTOMOSIS
     Route: 061
     Dates: start: 20130730

REACTIONS (3)
  - Peritonitis [Recovered/Resolved]
  - Depression [Recovered/Resolved]
  - Anastomotic leak [Recovered/Resolved]

NARRATIVE: CASE EVENT DATE: 20130802
